FAERS Safety Report 5003347-3 (Version None)
Quarter: 2006Q1

REPORT INFORMATION
  Report Type: 
  Country: None (occurrence: None)
  Receive Date: 20060317
  Receipt Date: 20060117
  Transmission Date: 20060701
  Serious: Yes (Hospitalization, Other)
  Sender: FDA-Public Use
  Company Number: US-JNJFOC-20051203007

PATIENT
  Age: 37 Year
  Sex: Female
  Weight: 113.3993 kg

DRUGS (5)
  1. ORTHO EVRA [Suspect]
     Indication: CONTRACEPTION
     Dosage: 1 DOSE(S), 3 IN 4 WEEK, TRANSDERMAL
     Route: 062
     Dates: start: 20040727, end: 20050101
  2. AUGMENTIN '125' [Concomitant]
  3. HCTZ/TRIAMTERENE (HYDROCHLOROTHIAZIDE) [Concomitant]
  4. PERCOCET [Concomitant]
  5. ZYRTEC [Concomitant]

REACTIONS (3)
  - DEEP VEIN THROMBOSIS [None]
  - HEADACHE [None]
  - PULMONARY EMBOLISM [None]
